FAERS Safety Report 15845595 (Version 1)
Quarter: 2019Q1

REPORT INFORMATION
  Report Type: Spontaneous
  Country: US (occurrence: US)
  Receive Date: 20190119
  Receipt Date: 20190119
  Transmission Date: 20190417
  Serious: No
  Sender: FDA-Public Use
  Company Number: US-JNJFOC-20190105832

PATIENT
  Age: 62 Year
  Sex: Female
  Weight: 59.88 kg

DRUGS (2)
  1. STELARA [Suspect]
     Active Substance: USTEKINUMAB
     Indication: CROHN^S DISEASE
     Route: 058
     Dates: start: 20181031, end: 2018
  2. STELARA [Suspect]
     Active Substance: USTEKINUMAB
     Indication: CROHN^S DISEASE
     Route: 058
     Dates: start: 20181228

REACTIONS (4)
  - Erythema [Unknown]
  - Body temperature increased [Unknown]
  - Migraine [Unknown]
  - Eye pain [Unknown]

NARRATIVE: CASE EVENT DATE: 201811
